FAERS Safety Report 9734128 (Version 2)
Quarter: 2014Q1

REPORT INFORMATION
  Report Type: Spontaneous
  Country: GB (occurrence: GB)
  Receive Date: 20131205
  Receipt Date: 20140124
  Transmission Date: 20141002
  Serious: Yes (Death, Other)
  Sender: FDA-Public Use
  Company Number: GB-WATSON-2013-22226

PATIENT
  Age: 20 Year
  Sex: Male

DRUGS (1)
  1. FENTANYL (UNKNOWN) [Suspect]
     Indication: SUBSTANCE USE
     Dosage: UNK
     Route: 048
     Dates: start: 20120908, end: 20120908

REACTIONS (4)
  - Accidental overdose [Fatal]
  - Intentional drug misuse [Unknown]
  - Drug diversion [Unknown]
  - Incorrect route of drug administration [Unknown]
